FAERS Safety Report 7159645-0 (Version None)
Quarter: 2010Q4

REPORT INFORMATION
  Report Type: 
  Country: None (occurrence: None)
  Receive Date: 20101214
  Receipt Date: 20101028
  Transmission Date: 20110411
  Serious: Yes (Other)
  Sender: FDA-Public Use
  Company Number: US-ASTRAZENECA-2010SE51637

PATIENT
  Age: 75 Year
  Sex: Male

DRUGS (5)
  1. CRESTOR [Suspect]
     Route: 048
     Dates: start: 20100101, end: 20101001
  2. TOPROL-XL [Concomitant]
  3. CLONIDINE [Concomitant]
  4. LOTREL [Concomitant]
  5. NIACIN [Concomitant]

REACTIONS (1)
  - RHABDOMYOLYSIS [None]
